FAERS Safety Report 25385931 (Version 1)
Quarter: 2025Q2

REPORT INFORMATION
  Report Type: Spontaneous
  Country: US (occurrence: None)
  Receive Date: 20250530
  Receipt Date: 20250530
  Transmission Date: 20250717
  Serious: No
  Sender: FDA-CTU
  Company Number: None

PATIENT
  Age: 80 Year
  Sex: Male
  Weight: 72 kg

DRUGS (9)
  1. PRALUENT [Suspect]
     Active Substance: ALIROCUMAB
     Indication: Cardiovascular disorder
     Route: 050
     Dates: start: 20250206, end: 20250417
  2. LISINOPRIL [Concomitant]
     Active Substance: LISINOPRIL
  3. PLAVIX [Concomitant]
     Active Substance: CLOPIDOGREL BISULFATE
  4. XARELTO [Concomitant]
     Active Substance: RIVAROXABAN
  5. FINASTERIDE [Concomitant]
     Active Substance: FINASTERIDE
  6. HERBAL NOS [Concomitant]
     Active Substance: HERBALS
  7. VITAMINS [Concomitant]
     Active Substance: VITAMINS
  8. co-enzyme q 10 [Concomitant]
  9. FISH OIL [Concomitant]
     Active Substance: FISH OIL

REACTIONS (8)
  - Myalgia [None]
  - Arthralgia [None]
  - Asthenia [None]
  - Neuropathy peripheral [None]
  - Cough [None]
  - Nasal congestion [None]
  - Drug ineffective [None]
  - Respiratory tract congestion [None]
